FAERS Safety Report 15677459 (Version 3)
Quarter: 2018Q4

REPORT INFORMATION
  Report Type: Spontaneous
  Country: GB (occurrence: GB)
  Receive Date: 20181130
  Receipt Date: 20181225
  Transmission Date: 20190205
  Serious: Yes (Other)
  Sender: FDA-Public Use
  Company Number: PHHY2018GB149926

PATIENT
  Age: 37 Year
  Sex: Male

DRUGS (16)
  1. PYRAZINAMIDE. [Suspect]
     Active Substance: PYRAZINAMIDE
     Indication: TUBERCULOSIS
  2. AMIKACIN. [Suspect]
     Active Substance: AMIKACIN
     Indication: TUBERCULOSIS
  3. PYRAZINAMIDE. [Suspect]
     Active Substance: PYRAZINAMIDE
     Indication: DISSEMINATED TUBERCULOSIS
  4. DEXAMETHASONE. [Suspect]
     Active Substance: DEXAMETHASONE
     Indication: TUBERCULOSIS OF CENTRAL NERVOUS SYSTEM
     Dosage: 16 MG, BID
     Route: 065
  5. ISONIAZID. [Suspect]
     Active Substance: ISONIAZID
     Indication: TUBERCULOSIS OF CENTRAL NERVOUS SYSTEM
     Route: 065
  6. LEVOFLOXACIN. [Suspect]
     Active Substance: LEVOFLOXACIN
     Indication: TUBERCULOSIS OF CENTRAL NERVOUS SYSTEM
     Route: 065
  7. THALIDOMIDE [Concomitant]
     Active Substance: THALIDOMIDE
     Indication: TUBERCULOSIS OF CENTRAL NERVOUS SYSTEM
     Dosage: 50 MG, BID
     Route: 065
  8. THALIDOMIDE [Concomitant]
     Active Substance: THALIDOMIDE
     Dosage: 200 MG, BID
     Route: 065
  9. ISONIAZID. [Suspect]
     Active Substance: ISONIAZID
     Indication: DISSEMINATED TUBERCULOSIS
  10. RIFAMPICIN [Suspect]
     Active Substance: RIFAMPIN
     Indication: DISSEMINATED TUBERCULOSIS
  11. ETHAMBUTOL [Suspect]
     Active Substance: ETHAMBUTOL HYDROCHLORIDE
     Indication: TUBERCULOSIS OF CENTRAL NERVOUS SYSTEM
     Route: 065
  12. ETHAMBUTOL [Suspect]
     Active Substance: ETHAMBUTOL HYDROCHLORIDE
     Indication: DISSEMINATED TUBERCULOSIS
  13. RIFAMPICIN [Suspect]
     Active Substance: RIFAMPIN
     Indication: TUBERCULOSIS OF CENTRAL NERVOUS SYSTEM
     Route: 065
  14. LEVOFLOXACIN. [Suspect]
     Active Substance: LEVOFLOXACIN
     Indication: TUBERCULOSIS
  15. PYRAZINAMIDE. [Suspect]
     Active Substance: PYRAZINAMIDE
     Indication: TUBERCULOSIS OF CENTRAL NERVOUS SYSTEM
     Dosage: UNK
     Route: 065
  16. AMIKACIN. [Suspect]
     Active Substance: AMIKACIN
     Indication: TUBERCULOSIS OF CENTRAL NERVOUS SYSTEM
     Route: 065

REACTIONS (7)
  - Hydrocephalus [Recovered/Resolved]
  - Drug resistance [Unknown]
  - Brain oedema [Recovered/Resolved]
  - Vasculitis [Unknown]
  - Drug ineffective [Unknown]
  - Thalamic infarction [Recovered/Resolved]
  - Somnolence [Recovered/Resolved]
